FAERS Safety Report 10089948 (Version 2)
Quarter: 2014Q2

REPORT INFORMATION
  Report Type: Spontaneous
  Country: US (occurrence: None)
  Receive Date: 20140417
  Receipt Date: 20140428
  Transmission Date: 20141212
  Serious: Yes (Death, Other)
  Sender: FDA-Public Use
  Company Number: SYM-2014-19778

PATIENT
  Age: 69 Year
  Sex: Male

DRUGS (1)
  1. XENAZINE (TETRABENAZINE) (25 MILLIGRAM, TABLET) (TETRABENAZINE) [Suspect]
     Indication: HUNTINGTON^S DISEASE
     Route: 048
     Dates: start: 2009

REACTIONS (1)
  - Death [None]
